FAERS Safety Report 7331309-X (Version None)
Quarter: 2011Q1

REPORT INFORMATION
  Report Type: 
  Country: None (occurrence: None)
  Receive Date: 20110304
  Receipt Date: 20110223
  Transmission Date: 20110831
  Serious: Yes (Other)
  Sender: FDA-Public Use
  Company Number: US-JNJFOC-20101200895

PATIENT
  Sex: Female
  Weight: 111.13 kg

DRUGS (6)
  1. REMICADE [Suspect]
     Indication: PSORIATIC ARTHROPATHY
     Route: 042
  2. MORPHINE [Concomitant]
     Indication: PAIN
     Route: 048
  3. RITALIN [Concomitant]
     Indication: ATTENTION DEFICIT/HYPERACTIVITY DISORDER
     Route: 048
  4. SEROQUEL [Concomitant]
     Indication: DEPRESSION
     Route: 048
  5. SYNTHROID [Concomitant]
     Indication: HYPOTHYROIDISM
     Route: 048
  6. KLONOPIN [Concomitant]
     Indication: ANXIETY
     Route: 048

REACTIONS (3)
  - FALL [None]
  - MENISCUS LESION [None]
  - BEDRIDDEN [None]
